FAERS Safety Report 11856794 (Version 3)
Quarter: 2016Q1

REPORT INFORMATION
  Report Type: Report from Study
  Country: JP (occurrence: JP)
  Receive Date: 20151221
  Receipt Date: 20160120
  Transmission Date: 20160526
  Serious: Yes (Hospitalization)
  Sender: FDA-Public Use
  Company Number: JP-EISAI MEDICAL RESEARCH-EC-2015-012803

PATIENT
  Age: 73 Year
  Sex: Male
  Weight: 55 kg

DRUGS (11)
  1. DONEPEZIL. [Suspect]
     Active Substance: DONEPEZIL
     Indication: DEMENTIA WITH LEWY BODIES
     Route: 048
     Dates: start: 20150919, end: 20151127
  2. MAGMITT [Concomitant]
     Active Substance: MAGNESIUM OXIDE
  3. BETANIS [Concomitant]
     Active Substance: MIRABEGRON
  4. ESZOPICLONE. [Concomitant]
     Active Substance: ESZOPICLONE
  5. GLUCOBAY [Concomitant]
     Active Substance: ACARBOSE
  6. MENESIT [Concomitant]
     Active Substance: CARBIDOPA\LEVODOPA
  7. MICARDIS [Concomitant]
     Active Substance: TELMISARTAN
  8. FLIVAS OD [Concomitant]
  9. AMARYL [Concomitant]
     Active Substance: GLIMEPIRIDE
  10. TENELIA [Concomitant]
     Active Substance: TENELIGLIPTIN
  11. METGLUCO [Concomitant]
     Active Substance: METFORMIN HYDROCHLORIDE

REACTIONS (1)
  - Parkinsonism [Recovering/Resolving]

NARRATIVE: CASE EVENT DATE: 20151027
